FAERS Safety Report 21786438 (Version 1)
Quarter: 2022Q4

REPORT INFORMATION
  Report Type: Report from Study
  Country: FR (occurrence: FR)
  Receive Date: 20221228
  Receipt Date: 20221228
  Transmission Date: 20230113
  Serious: Yes (Hospitalization)
  Sender: FDA-Public Use
  Company Number: FR-JNJFOC-20221243895

PATIENT
  Age: 83 Year
  Sex: Female

DRUGS (2)
  1. DARATUMUMAB [Suspect]
     Active Substance: DARATUMUMAB
     Indication: Plasma cell myeloma
     Dosage: C16D1
     Route: 042
     Dates: start: 2021, end: 20221006
  2. IXAZOMIB [Suspect]
     Active Substance: IXAZOMIB
     Indication: Plasma cell myeloma
     Dosage: C16D15
     Route: 048
     Dates: start: 2021, end: 20221020

REACTIONS (3)
  - General physical health deterioration [Recovering/Resolving]
  - Myoclonus [Recovering/Resolving]
  - Anaemia [Recovering/Resolving]

NARRATIVE: CASE EVENT DATE: 20221027
